FAERS Safety Report 26010151 (Version 1)
Quarter: 2025Q4

REPORT INFORMATION
  Report Type: Spontaneous
  Country: EU (occurrence: EU)
  Receive Date: 20251107
  Receipt Date: 20251107
  Transmission Date: 20260117
  Serious: Yes (Disabling)
  Sender: ORGANON
  Company Number: None

PATIENT
  Age: 21 Year
  Sex: Female
  Weight: 106 kg

DRUGS (6)
  1. NEXPLANON [Suspect]
     Active Substance: ETONOGESTREL
     Indication: Contraception
     Dosage: 1 IMPLANT, 68 MG
     Route: 065
     Dates: start: 20171113, end: 20210909
  2. LISDEXAMFETAMINE DIMESYLATE [Concomitant]
     Active Substance: LISDEXAMFETAMINE DIMESYLATE
     Dosage: UNK
  3. MELATONIN [Concomitant]
     Active Substance: MELATONIN
     Dosage: 1-2 TABLETS
  4. CONCERTA [Concomitant]
     Active Substance: METHYLPHENIDATE HYDROCHLORIDE
  5. CITALOPRAM [Concomitant]
     Active Substance: CITALOPRAM
  6. PROPIOMAZINE [Concomitant]
     Active Substance: PROPIOMAZINE
     Dosage: 1-2 TABLETS

REACTIONS (2)
  - Osteonecrosis [Recovered/Resolved with Sequelae]
  - Incorrect product administration duration [Unknown]

NARRATIVE: CASE EVENT DATE: 20190901
